FAERS Safety Report 7726856-2 (Version None)
Quarter: 2011Q3

REPORT INFORMATION
  Report Type: 
  Country: None (occurrence: None)
  Receive Date: 20110902
  Receipt Date: 20110823
  Transmission Date: 20111222
  Serious: Yes (Other)
  Sender: FDA-Public Use
  Company Number: GB-GENENTECH-323020

PATIENT
  Sex: Female

DRUGS (6)
  1. LODINE [Concomitant]
     Indication: RHEUMATOID ARTHRITIS
  2. PREDNISOLONE [Concomitant]
     Indication: PRODUCT USED FOR UNKNOWN INDICATION
  3. LISINOPRIL [Concomitant]
     Indication: BLOOD PRESSURE INCREASED
  4. RITUXIMAB [Suspect]
     Indication: RHEUMATOID ARTHRITIS
     Dosage: 1 G, Q2W
     Route: 042
     Dates: start: 20080101, end: 20110501
  5. DIHYDROCODEINE BITARTRATE INJ [Concomitant]
     Indication: RHEUMATOID ARTHRITIS
  6. ACETAMINOPHEN [Concomitant]
     Indication: PRODUCT USED FOR UNKNOWN INDICATION

REACTIONS (3)
  - THERAPEUTIC RESPONSE DECREASED [None]
  - HYPOGAMMAGLOBULINAEMIA [None]
  - SINUSITIS [None]
